FAERS Safety Report 9801755 (Version 1)
Quarter: 2014Q1

REPORT INFORMATION
  Report Type: Spontaneous
  Country: US (occurrence: US)
  Receive Date: 20140107
  Receipt Date: 20140107
  Transmission Date: 20141002
  Serious: Yes (Hospitalization)
  Sender: FDA-Public Use
  Company Number: US-GLAXOSMITHKLINE-A1054912A

PATIENT
  Age: 69 Year
  Sex: Male

DRUGS (10)
  1. ADVAIR HFA [Suspect]
     Indication: CHRONIC OBSTRUCTIVE PULMONARY DISEASE
     Dosage: 2PUFF TWICE PER DAY
     Route: 055
  2. LYRICA [Concomitant]
  3. METOPROLOL [Concomitant]
  4. AMITRIPTYLINE [Concomitant]
  5. HYDROCODONE [Concomitant]
  6. NORCO [Concomitant]
  7. AMIODARONE [Concomitant]
  8. PRILOSEC [Concomitant]
  9. MUCINEX [Concomitant]
  10. ASPIRIN LOW DOSE [Concomitant]

REACTIONS (10)
  - Pneumonia [Recovering/Resolving]
  - Bronchopulmonary aspergillosis [Unknown]
  - Aspergilloma [Unknown]
  - Lung lobectomy [Unknown]
  - Wound infection [Unknown]
  - Wound [Unknown]
  - Pyrexia [Recovering/Resolving]
  - Laboratory test abnormal [Unknown]
  - Staphylococcal infection [Unknown]
  - Oxygen saturation decreased [Unknown]
